FAERS Safety Report 14794200 (Version 2)
Quarter: 2018Q2

REPORT INFORMATION
  Report Type: Spontaneous
  Country: FR (occurrence: FR)
  Receive Date: 20180423
  Receipt Date: 20180508
  Transmission Date: 20180711
  Serious: Yes (Hospitalization, Other)
  Sender: FDA-Public Use
  Company Number: FR-MYLANLABS-2018M1025507

PATIENT
  Age: 3 Year
  Sex: Female

DRUGS (13)
  1. DEXAMETHASONE. [Suspect]
     Active Substance: DEXAMETHASONE
     Indication: ACUTE LYMPHOCYTIC LEUKAEMIA
     Dosage: 42 MG, UNK
     Dates: start: 20170925, end: 20171001
  2. CYTARABINE. [Suspect]
     Active Substance: CYTARABINE
     Dosage: 174 MG, UNK
     Dates: start: 20171027, end: 20171030
  3. VINCRISTINE [Suspect]
     Active Substance: VINCRISTINE
     Dosage: 0.87 MG, UNK
     Route: 042
     Dates: start: 20171113, end: 20171120
  4. PEGASPARGASE [Suspect]
     Active Substance: PEGASPARGASE
     Indication: ACUTE LYMPHOCYTIC LEUKAEMIA
     Dosage: 1425 IU, UNK
     Route: 042
     Dates: start: 20170928, end: 20171113
  5. CYTARABINE. [Suspect]
     Active Substance: CYTARABINE
     Dosage: 174 MG, UNK
     Dates: start: 20171103, end: 20171106
  6. DOXORUBICIN [Suspect]
     Active Substance: DOXORUBICIN
     Indication: ACUTE LYMPHOCYTIC LEUKAEMIA
     Dosage: 14.4 MG, UNK
     Route: 042
     Dates: start: 20170925, end: 20171009
  7. CYCLOPHOSPHAMIDE. [Suspect]
     Active Substance: CYCLOPHOSPHAMIDE
     Indication: ACUTE LYMPHOCYTIC LEUKAEMIA
     Dosage: 580 MG, UNK
     Dates: start: 20171025, end: 20171112
  8. METHOTREXATE. [Suspect]
     Active Substance: METHOTREXATE
     Indication: ACUTE LYMPHOCYTIC LEUKAEMIA
     Dosage: 12 MG, UNK
     Route: 037
     Dates: start: 20170928, end: 20171027
  9. CORTICOSTEROID NOS [Suspect]
     Active Substance: CORTICOSTEROID NOS
     Indication: ACUTE LYMPHOCYTIC LEUKAEMIA
     Dosage: 15 MG, UNK
     Route: 037
     Dates: start: 20170928, end: 20171027
  10. DEXAMETHASONE. [Suspect]
     Active Substance: DEXAMETHASONE
     Dosage: 42 MG, UNK
     Dates: start: 20171009, end: 20171015
  11. CYTARABINE. [Suspect]
     Active Substance: CYTARABINE
     Indication: ACUTE LYMPHOCYTIC LEUKAEMIA
     Dosage: 30 MG, UNK
     Route: 037
     Dates: start: 20170928, end: 20171027
  12. VINCRISTINE [Suspect]
     Active Substance: VINCRISTINE
     Indication: ACUTE LYMPHOCYTIC LEUKAEMIA
     Dosage: 0.86 MG, UNK
     Route: 042
     Dates: start: 20170925, end: 20171009
  13. MERCAPTOPURINE MONOHYDRATE [Suspect]
     Active Substance: MERCAPTOPURINE
     Indication: ACUTE LYMPHOCYTIC LEUKAEMIA
     Dosage: 490 MG, UNK
     Dates: start: 20171025, end: 20171112

REACTIONS (4)
  - Respiratory syncytial virus infection [Recovered/Resolved]
  - Pulmonary haemorrhage [Recovered/Resolved]
  - Lung disorder [Recovered/Resolved]
  - Febrile bone marrow aplasia [Recovered/Resolved]

NARRATIVE: CASE EVENT DATE: 20171227
